FAERS Safety Report 8104791-8 (Version None)
Quarter: 2012Q1

REPORT INFORMATION
  Report Type: 
  Country: None (occurrence: None)
  Receive Date: 20120130
  Receipt Date: 20120118
  Transmission Date: 20120608
  Serious: Yes (Other)
  Sender: FDA-Public Use
  Company Number: US-PFIZER INC-2012014408

PATIENT

DRUGS (1)
  1. SOLU-MEDROL [Suspect]
     Dosage: UNK

REACTIONS (3)
  - RASH [None]
  - UPPER AIRWAY OBSTRUCTION [None]
  - RESPIRATORY DISTRESS [None]
